FAERS Safety Report 7434112-5 (Version None)
Quarter: 2011Q2

REPORT INFORMATION
  Report Type: 
  Country: None (occurrence: None)
  Receive Date: 20110421
  Receipt Date: 20110421
  Transmission Date: 20111010
  Serious: Yes (Disabling)
  Sender: FDA-Public Use
  Company Number: None

PATIENT
  Sex: Male

DRUGS (2)
  1. ENTEREG [Suspect]
     Indication: PROPHYLAXIS
     Dosage: 12MG Q12 HOURS ORAL
     Route: 048
     Dates: start: 20110322, end: 20110324
  2. ENTEREG [Suspect]
     Indication: POSTOPERATIVE ILEUS
     Dosage: 12MG Q12 HOURS ORAL
     Route: 048
     Dates: start: 20110322, end: 20110324

REACTIONS (2)
  - ACUTE MYOCARDIAL INFARCTION [None]
  - POST PROCEDURAL COMPLICATION [None]
